FAERS Safety Report 8256750-2 (Version None)
Quarter: 2012Q2

REPORT INFORMATION
  Report Type: 
  Country: None (occurrence: None)
  Receive Date: 20120403
  Receipt Date: 20120329
  Transmission Date: 20120825
  Serious: Yes (Hospitalization, Other)
  Sender: FDA-Public Use
  Company Number: US-PFIZER INC-2012076168

PATIENT
  Sex: Female
  Weight: 106 kg

DRUGS (6)
  1. LASIX [Concomitant]
     Dosage: 40 MG, 2X/DAY
  2. PROCARDIA XL [Suspect]
     Dosage: 90 MG, 2X/DAY
     Route: 048
     Dates: start: 20120313
  3. AVAPRO [Concomitant]
     Dosage: 300 MG, 1X/DAY
  4. COREG [Concomitant]
     Dosage: 25 MG, 2X/DAY
  5. PROCARDIA XL [Suspect]
     Indication: HYPERTENSION
     Dosage: 90 MG, 1X/DAY
     Route: 048
     Dates: start: 20120214, end: 20120312
  6. TENEX [Concomitant]
     Dosage: 1 MG, 1X/DAY

REACTIONS (6)
  - ARTHROPOD BITE [None]
  - RENAL IMPAIRMENT [None]
  - DRUG EFFECT DECREASED [None]
  - HYPERTENSION [None]
  - OEDEMA PERIPHERAL [None]
  - WEIGHT FLUCTUATION [None]
